FAERS Safety Report 6763806-X (Version None)
Quarter: 2010Q2

REPORT INFORMATION
  Report Type: 
  Country: None (occurrence: None)
  Receive Date: 20100608
  Receipt Date: 20100528
  Transmission Date: 20101027
  Serious: Yes (Hospitalization)
  Sender: FDA-Public Use
  Company Number: 7006538

PATIENT
  Age: 60 Year
  Sex: Male

DRUGS (2)
  1. REBIF [Suspect]
     Indication: MULTIPLE SCLEROSIS
     Dosage: 44 MCG, 3 IN 1 WK, SUBCUTANEOUS
     Route: 058
     Dates: start: 20100201, end: 20100505
  2. DILTIAZEM [Concomitant]

REACTIONS (9)
  - ABDOMINAL PAIN UPPER [None]
  - BLOOD CHOLESTEROL INCREASED [None]
  - CHEST PAIN [None]
  - COLD SWEAT [None]
  - DYSPNOEA [None]
  - INFLUENZA LIKE ILLNESS [None]
  - NAUSEA [None]
  - OEDEMA PERIPHERAL [None]
  - POLLAKIURIA [None]
